FAERS Safety Report 8989291 (Version 1)
Quarter: 2012Q4

REPORT INFORMATION
  Report Type: 
  Country: DE (occurrence: DE)
  Receive Date: 20121227
  Receipt Date: 20121227
  Transmission Date: 20130627
  Serious: Yes (Other)
  Sender: FDA-Public Use
  Company Number: DE-MYLANLABS-2012S1025803

PATIENT
  Age: 0 Year
  Sex: Male
  Weight: 2.25 kg

DRUGS (2)
  1. RISPERIDONE [Suspect]
     Dosage: 3 [mg/d (1-0-2) ]/ since 2006; probably taken until delivery
     Route: 064
  2. FOLIC ACID [Concomitant]
     Indication: PROPHYLAXIS OF NEURAL TUBE DEFECT
     Route: 064

REACTIONS (4)
  - Exposure during pregnancy [Recovered/Resolved]
  - Neonatal respiratory distress syndrome [Recovered/Resolved]
  - Feeding disorder neonatal [Recovered/Resolved]
  - Foetal growth restriction [Unknown]
